FAERS Safety Report 9122129 (Version 1)
Quarter: 2013Q1

REPORT INFORMATION
  Report Type: Spontaneous
  Country: US (occurrence: None)
  Receive Date: 20130125
  Receipt Date: 20130125
  Transmission Date: 20140127
  Serious: Yes (Hospitalization)
  Sender: FDA-Public Use
  Company Number: 2012US-004470

PATIENT
  Age: 39 Year
  Sex: Female

DRUGS (7)
  1. OMONTYS (PEGINESATIDE) SOLUTION FOR INJECTION [Suspect]
     Indication: NEPHROGENIC ANAEMIA
     Route: 042
     Dates: start: 20121023, end: 20121023
  2. CARVEDILOL (CARVEDILOL) [Concomitant]
  3. LIPITOR (ATORVASTATIN CALCIUM) [Concomitant]
  4. METHCARBAMOL (METHOCARBAMOL) [Concomitant]
  5. LORTAB (HYDROCOCODONE BITARTRATE, PARACETAMOL) [Concomitant]
  6. RENVELA (SEVELAMER CARBONATE) [Concomitant]
  7. SENSIPAR (CINACALCET HYDROCHLORIDE) [Concomitant]

REACTIONS (2)
  - Medical device complication [None]
  - Haemoglobin decreased [None]
